FAERS Safety Report 7244153-9 (Version None)
Quarter: 2011Q1

REPORT INFORMATION
  Report Type: 
  Country: None (occurrence: None)
  Receive Date: 20110125
  Receipt Date: 20110112
  Transmission Date: 20110831
  Serious: No
  Sender: FDA-Public Use
  Company Number: US-B.I. PHARMACEUTICALS,INC./RIDGEFIELD-2011-BP-00808BP

PATIENT
  Sex: Female

DRUGS (2)
  1. SPIRIVA [Suspect]
     Dates: start: 20101117
  2. SPIRIVA [Suspect]
     Indication: ASTHMA
     Route: 048
     Dates: start: 20110112, end: 20110112

REACTIONS (1)
  - INCORRECT ROUTE OF DRUG ADMINISTRATION [None]
